FAERS Safety Report 9994771 (Version 2)
Quarter: 2014Q2

REPORT INFORMATION
  Report Type: Report from Study
  Country: BR (occurrence: BR)
  Receive Date: 20140311
  Receipt Date: 20140401
  Transmission Date: 20141212
  Serious: Yes (Other)
  Sender: FDA-Public Use
  Company Number: PHHY2014BR026773

PATIENT
  Sex: Female
  Weight: 62 kg

DRUGS (7)
  1. SANDOSTATIN LAR [Suspect]
     Indication: ACROMEGALY
     Dosage: 20 MG, EVERY 28 DAYS
     Route: 030
     Dates: start: 200807
  2. SANDOSTATIN LAR [Suspect]
     Dosage: 30 MG, EVERY 28 DAYS
     Route: 030
     Dates: start: 2010
  3. SANDOSTATIN LAR [Suspect]
     Dosage: 40 MG, EVERY 28 DAYS
     Route: 030
  4. CABERGOLINE [Suspect]
     Indication: ACROMEGALY
     Dosage: 4 DF, (0.5 MG) WEEKLY
     Dates: start: 2010
  5. CABERGOLINE [Suspect]
     Dosage: 6 DF, (0.5 MG) WEEKLY
  6. TYLEX [Concomitant]
     Indication: PAIN
     Dosage: 1 DF, (500 MG) DAILY (WHEN PRESENTED PAIN)
  7. CYCLOBENZAPRINE HYDROCHLORIDE [Concomitant]
     Indication: PAIN
     Dosage: 2 OR 3 DF, (10 MG) DAILY (WHEN PRESENTED PAIN)

REACTIONS (6)
  - Leiomyoma [Recovering/Resolving]
  - Menorrhagia [Recovering/Resolving]
  - Neck pain [Recovering/Resolving]
  - Injection site induration [Recovering/Resolving]
  - Arthralgia [Recovering/Resolving]
  - Drug ineffective [Recovering/Resolving]
